FAERS Safety Report 14479810 (Version 7)
Quarter: 2018Q2

REPORT INFORMATION
  Report Type: Spontaneous
  Country: ES (occurrence: ES)
  Receive Date: 20180202
  Receipt Date: 20180601
  Transmission Date: 20180711
  Serious: Yes (Other)
  Sender: FDA-Public Use
  Company Number: ES-BAXTER-2018BAX003218

PATIENT
  Sex: Male

DRUGS (43)
  1. GENOXAL [Suspect]
     Active Substance: CYCLOPHOSPHAMIDE
     Route: 037
     Dates: start: 20170123
  2. GENOXAL [Suspect]
     Active Substance: CYCLOPHOSPHAMIDE
     Route: 037
     Dates: start: 20161128
  3. DEPOCYTE [Suspect]
     Active Substance: CYTARABINE
     Dosage: UNK, CYCLIC, HYPER CVAD REGIMEN
     Route: 037
     Dates: start: 20161017
  4. DOXORUBICINE HYDROCHLORIDE [Suspect]
     Active Substance: DOXORUBICIN HYDROCHLORIDE
     Route: 037
     Dates: start: 20170123
  5. METHOTREXATE. [Suspect]
     Active Substance: METHOTREXATE
     Route: 037
     Dates: start: 20161220
  6. DASATINIB. [Suspect]
     Active Substance: DASATINIB
     Indication: ACUTE LYMPHOCYTIC LEUKAEMIA RECURRENT
     Dosage: UNK
     Route: 065
  7. METHYLPREDNISOLONE SODIUM SUCCINATE. [Suspect]
     Active Substance: METHYLPREDNISOLONE SODIUM SUCCINATE
     Indication: ACUTE LYMPHOCYTIC LEUKAEMIA RECURRENT
     Dosage: UNK, CYCLIC, HYPER CVAD REGIMEN
     Route: 037
     Dates: start: 20161017
  8. VINCRISTINE [Suspect]
     Active Substance: VINCRISTINE
     Indication: ACUTE LYMPHOCYTIC LEUKAEMIA RECURRENT
     Dosage: UNK, CYCLIC, HYPER CVAD REGIMEN
     Route: 037
     Dates: start: 20161017
  9. VINCRISTINE [Suspect]
     Active Substance: VINCRISTINE
     Route: 037
     Dates: start: 20170123
  10. CALCIUM FOLINATE [Suspect]
     Active Substance: LEUCOVORIN CALCIUM
     Route: 037
     Dates: start: 20170123
  11. DEPOCYTE [Suspect]
     Active Substance: CYTARABINE
     Indication: ACUTE LYMPHOCYTIC LEUKAEMIA RECURRENT
     Dosage: 2X/DAY (2G PER SQUARE METERS, EVERY 12 HOURS)
     Route: 037
     Dates: start: 20161107
  12. DEPOCYTE [Suspect]
     Active Substance: CYTARABINE
     Route: 037
     Dates: start: 20161128
  13. VINCRISTINE [Suspect]
     Active Substance: VINCRISTINE
     Route: 037
  14. METHOTREXATE SODIUM. [Suspect]
     Active Substance: METHOTREXATE SODIUM
     Route: 037
     Dates: start: 20170123
  15. CALCIUM FOLINATE [Suspect]
     Active Substance: LEUCOVORIN CALCIUM
     Indication: ACUTE LYMPHOCYTIC LEUKAEMIA RECURRENT
     Route: 037
     Dates: start: 20161128
  16. DEPOCYTE [Suspect]
     Active Substance: CYTARABINE
     Route: 037
     Dates: start: 20170123
  17. DEXAMETHASONE. [Suspect]
     Active Substance: DEXAMETHASONE
     Route: 037
     Dates: start: 20170123
  18. FOLINIC ACID [Suspect]
     Active Substance: LEUCOVORIN
     Indication: ACUTE LYMPHOCYTIC LEUKAEMIA RECURRENT
     Dosage: UNK, CYCLIC, HYPER CVAD REGIMEN
     Route: 065
     Dates: start: 20161017
  19. METHYLPREDNISOLONE SODIUM SUCCINATE. [Suspect]
     Active Substance: METHYLPREDNISOLONE SODIUM SUCCINATE
     Route: 037
  20. CALCIUM FOLINATE [Suspect]
     Active Substance: LEUCOVORIN CALCIUM
     Route: 037
  21. DEXAMETHASONE. [Suspect]
     Active Substance: DEXAMETHASONE
     Indication: ACUTE LYMPHOCYTIC LEUKAEMIA RECURRENT
     Dosage: UNK, CYCLIC, HYPER CVAD REGIMEN
     Route: 037
     Dates: start: 20161017
  22. METHOTREXATE. [Suspect]
     Active Substance: METHOTREXATE
     Indication: ACUTE LYMPHOCYTIC LEUKAEMIA RECURRENT
     Dosage: UNK, CYCLIC, HYPER CVAD REGIMEN
     Route: 065
     Dates: start: 20161017
  23. METHOTREXATE SODIUM. [Suspect]
     Active Substance: METHOTREXATE SODIUM
     Route: 037
     Dates: start: 20161128
  24. CALCIUM FOLINATE [Suspect]
     Active Substance: LEUCOVORIN CALCIUM
     Route: 065
     Dates: start: 20171223
  25. DEPOCYTE [Suspect]
     Active Substance: CYTARABINE
     Dosage: UNK
     Route: 037
     Dates: start: 20161221
  26. DEXAMETHASONE. [Suspect]
     Active Substance: DEXAMETHASONE
     Route: 037
  27. DOXORUBICINE HYDROCHLORIDE [Suspect]
     Active Substance: DOXORUBICIN HYDROCHLORIDE
     Route: 037
     Dates: start: 20161128
  28. METHYLPREDNISOLONE SODIUM SUCCINATE. [Suspect]
     Active Substance: METHYLPREDNISOLONE SODIUM SUCCINATE
     Route: 065
     Dates: start: 20170117
  29. DEPOCYTE [Suspect]
     Active Substance: CYTARABINE
     Dosage: 2X/DAY (2G PER SQUARE METERS, EVERY 12 HOURS)
     Route: 037
     Dates: start: 20171107
  30. DOXORUBICINE HYDROCHLORIDE [Suspect]
     Active Substance: DOXORUBICIN HYDROCHLORIDE
     Indication: ACUTE LYMPHOCYTIC LEUKAEMIA RECURRENT
     Dosage: UNK, CYCLIC, HYPER CVAD REGIMEN
     Route: 037
     Dates: start: 20161017
  31. METHYLPREDNISOLONE SODIUM SUCCINATE. [Suspect]
     Active Substance: METHYLPREDNISOLONE SODIUM SUCCINATE
     Route: 037
     Dates: start: 20161128
  32. METHOTREXATE SODIUM. [Suspect]
     Active Substance: METHOTREXATE SODIUM
     Indication: ACUTE LYMPHOCYTIC LEUKAEMIA RECURRENT
     Dosage: UNK, CYCLIC, 1G/SQUARE METERS
     Route: 037
     Dates: start: 20161107
  33. METHOTREXATE SODIUM. [Suspect]
     Active Substance: METHOTREXATE SODIUM
     Route: 037
     Dates: start: 20161017
  34. CALCIUM FOLINATE [Suspect]
     Active Substance: LEUCOVORIN CALCIUM
     Route: 037
     Dates: start: 20161017
  35. GENOXAL [Suspect]
     Active Substance: CYCLOPHOSPHAMIDE
     Indication: ACUTE LYMPHOCYTIC LEUKAEMIA RECURRENT
     Dosage: UNK, CYCLIC, HYPER CVAD REGIMEN
     Route: 037
     Dates: start: 20161017
  36. GENOXAL [Suspect]
     Active Substance: CYCLOPHOSPHAMIDE
     Route: 037
  37. DEPOCYTE [Suspect]
     Active Substance: CYTARABINE
     Route: 065
     Dates: start: 20171017
  38. DEXAMETHASONE. [Suspect]
     Active Substance: DEXAMETHASONE
     Route: 037
     Dates: start: 20161128
  39. DOXORUBICINE HYDROCHLORIDE [Suspect]
     Active Substance: DOXORUBICIN HYDROCHLORIDE
     Route: 037
     Dates: start: 20171017
  40. DOXORUBICINE HYDROCHLORIDE [Suspect]
     Active Substance: DOXORUBICIN HYDROCHLORIDE
     Route: 037
  41. METHYLPREDNISOLONE SODIUM SUCCINATE. [Suspect]
     Active Substance: METHYLPREDNISOLONE SODIUM SUCCINATE
     Route: 037
     Dates: start: 20170123
  42. VINCRISTINE [Suspect]
     Active Substance: VINCRISTINE
     Route: 037
     Dates: start: 20161128
  43. METHOTREXATE SODIUM. [Suspect]
     Active Substance: METHOTREXATE SODIUM
     Route: 037
     Dates: start: 20161220

REACTIONS (1)
  - Neoplasm recurrence [Unknown]

NARRATIVE: CASE EVENT DATE: 20180101
